FAERS Safety Report 9009190 (Version 1)
Quarter: 2013Q1

REPORT INFORMATION
  Report Type: Spontaneous
  Country: GB (occurrence: GB)
  Receive Date: 20130111
  Receipt Date: 20130111
  Transmission Date: 20140127
  Serious: Yes (Life-Threatening, Hospitalization)
  Sender: FDA-Public Use
  Company Number: GB-ELI_LILLY_AND_COMPANY-GB201301000986

PATIENT
  Age: 33 Year
  Sex: Female

DRUGS (6)
  1. DULOXETINE HYDROCHLORIDE [Suspect]
     Indication: NEUROPATHY PERIPHERAL
     Dosage: 30 MG, UNKNOWN
     Route: 048
     Dates: start: 20120806, end: 20120806
  2. LANTUS [Concomitant]
     Dosage: 16 IU, QD
     Route: 058
  3. LEVOTHYROXINE [Concomitant]
     Dosage: 125 UG, QD
     Route: 048
  4. NOVORAPID [Concomitant]
     Dosage: UNK, UNKNOWN
     Route: 058
  5. RAMIPRIL [Concomitant]
     Dosage: 2.5 MG, QD
     Route: 048
  6. SIMVASTATIN [Concomitant]
     Dosage: 40 MG, QD
     Route: 048

REACTIONS (1)
  - Diabetic ketoacidosis [Recovered/Resolved]
